FAERS Safety Report 6449412-5 (Version None)
Quarter: 2009Q4

REPORT INFORMATION
  Report Type: 
  Country: None (occurrence: None)
  Receive Date: 20091120
  Receipt Date: 20091112
  Transmission Date: 20100525
  Serious: Yes (Hospitalization, Other)
  Sender: FDA-Public Use
  Company Number: US-BAYER-200916754BCC

PATIENT
  Age: 23 Year
  Sex: Female
  Weight: 70 kg

DRUGS (4)
  1. RID MOUSSE [Suspect]
     Indication: LICE INFESTATION
     Route: 061
     Dates: start: 20091109
  2. OXYCONTIN [Concomitant]
     Route: 065
  3. XANAX [Concomitant]
     Route: 065
  4. KEPPRA [Concomitant]
     Route: 065

REACTIONS (1)
  - CONVULSION [None]
